FAERS Safety Report 24697188 (Version 3)
Quarter: 2024Q4

REPORT INFORMATION
  Report Type: Spontaneous
  Country: AU (occurrence: AU)
  Receive Date: 20241204
  Receipt Date: 20241212
  Transmission Date: 20250115
  Serious: Yes (Life-Threatening, Hospitalization, Other)
  Sender: NOVARTIS
  Company Number: AU-002147023-NVSC2024AU230741

PATIENT
  Age: 81 Year
  Sex: Female

DRUGS (3)
  1. TAFINLAR [Suspect]
     Active Substance: DABRAFENIB MESYLATE
     Indication: Neoplasm malignant
     Dosage: 120 (2 DOSAGE FORM), BID
     Route: 065
     Dates: start: 20241116
  2. MEKINIST [Suspect]
     Active Substance: TRAMETINIB DIMETHYL SULFOXIDE
     Indication: Neoplasm malignant
     Dosage: 30 (1 DOSAGE FORM), QD
     Route: 065
     Dates: start: 20241116
  3. INSULIN NOS [Concomitant]
     Active Substance: INSULIN NOS
     Indication: Type 1 diabetes mellitus
     Dosage: UNK
     Route: 065

REACTIONS (6)
  - Diabetic ketoacidosis [Unknown]
  - Shock [Unknown]
  - Decreased appetite [Unknown]
  - Nausea [Unknown]
  - Retching [Unknown]
  - Malaise [Unknown]

NARRATIVE: CASE EVENT DATE: 20241101
